FAERS Safety Report 24362135 (Version 1)
Quarter: 2024Q3

REPORT INFORMATION
  Report Type: Spontaneous
  Country: DE (occurrence: DE)
  Receive Date: 20240925
  Receipt Date: 20240925
  Transmission Date: 20241016
  Serious: Yes (Other)
  Sender: TEVA
  Company Number: DE-TEVA-VS-3237762

PATIENT
  Age: 86 Year
  Sex: Male

DRUGS (1)
  1. TAMSULOSIN [Suspect]
     Active Substance: TAMSULOSIN
     Indication: Prostatic disorder
     Dosage: RATIOPHARM 0,4 MG HARTKAPSELN MIT VER?NDERTER WIRKSTOFFFREISETZUNG? DOSAGE: 1-0-0
     Route: 048
     Dates: end: 2024

REACTIONS (4)
  - Ocular procedural complication [Unknown]
  - Eye operation [Unknown]
  - Fall [Unknown]
  - Asthenia [Unknown]
